FAERS Safety Report 5334412-9 (Version None)
Quarter: 2007Q2

REPORT INFORMATION
  Report Type: 
  Country: None (occurrence: None)
  Receive Date: 20070525
  Receipt Date: 20070523
  Transmission Date: 20071010
  Serious: Yes (Other)
  Sender: FDA-Public Use
  Company Number: HQWYE326624MAY07

PATIENT
  Sex: Male

DRUGS (1)
  1. ADVIL [Suspect]
     Dosage: APPROXIMATELY 40
     Route: 048
     Dates: start: 20070523

REACTIONS (2)
  - OVERDOSE [None]
  - RESPIRATORY RATE DECREASED [None]
